FAERS Safety Report 19947201 (Version 1)
Quarter: 2021Q4

REPORT INFORMATION
  Report Type: Spontaneous
  Country: GR (occurrence: GR)
  Receive Date: 20211013
  Receipt Date: 20211013
  Transmission Date: 20220303
  Serious: Yes (Other)
  Sender: FDA-Public Use
  Company Number: GR-ADVANZ PHARMA-202103001834

PATIENT

DRUGS (4)
  1. HYDROXYCHLOROQUINE SULFATE [Suspect]
     Active Substance: HYDROXYCHLOROQUINE SULFATE
     Indication: Systemic lupus erythematosus
     Dosage: UNK, FILM-COATED TABLET
     Route: 065
     Dates: start: 202002, end: 202007
  2. HYDROXYCHLOROQUINE SULFATE [Suspect]
     Active Substance: HYDROXYCHLOROQUINE SULFATE
     Dosage: UNK, FILM-COATED TABLET
     Route: 065
     Dates: start: 2021
  3. COLCHICINE [Concomitant]
     Active Substance: COLCHICINE
     Dosage: UNK
  4. PROGESTERONE [Concomitant]
     Active Substance: PROGESTERONE
     Dosage: UNK

REACTIONS (2)
  - Placenta accreta [Unknown]
  - Exposure during pregnancy [Unknown]

NARRATIVE: CASE EVENT DATE: 20210901
